FAERS Safety Report 5223353-3 (Version None)
Quarter: 2007Q1

REPORT INFORMATION
  Report Type: 
  Country: None (occurrence: None)
  Receive Date: 20061201
  Receipt Date: 20060702
  Transmission Date: 20070707
  Serious: No
  Sender: FDA-Public Use
  Company Number: 2006PV016841

PATIENT
  Age: 60 Year
  Sex: Female
  Weight: 127.0072 kg

DRUGS (12)
  1. BYETTA [Suspect]
     Indication: DIABETES MELLITUS NON-INSULIN-DEPENDENT
     Dosage: SEE IMAGE
     Route: 058
     Dates: start: 20060525, end: 20060624
  2. BYETTA [Suspect]
     Indication: DIABETES MELLITUS NON-INSULIN-DEPENDENT
     Dosage: SEE IMAGE
     Route: 058
     Dates: start: 20060625, end: 20060703
  3. BYETTA [Suspect]
     Indication: DIABETES MELLITUS NON-INSULIN-DEPENDENT
     Dosage: SEE IMAGE
     Route: 058
     Dates: start: 20060703
  4. METFORMIN HCL [Concomitant]
  5. ACTOS [Concomitant]
  6. PREDNISONE [Concomitant]
  7. LASIX [Concomitant]
  8. LIPITOR [Concomitant]
  9. VERAPAMIL [Concomitant]
  10. LISINOPRIL [Concomitant]
  11. SYNTHROID [Concomitant]
  12. CATAPRES [Concomitant]

REACTIONS (6)
  - DIZZINESS [None]
  - EYELID OEDEMA [None]
  - HYPERHIDROSIS [None]
  - NAUSEA [None]
  - VOMITING [None]
  - WEIGHT DECREASED [None]
